FAERS Safety Report 18014496 (Version 1)
Quarter: 2020Q3

REPORT INFORMATION
  Report Type: Spontaneous
  Country: US (occurrence: US)
  Receive Date: 20200713
  Receipt Date: 20200713
  Transmission Date: 20201103
  Serious: Yes (Disabling)
  Sender: FDA-Public Use
  Company Number: None

PATIENT
  Age: 56 Year
  Sex: Male
  Weight: 112.5 kg

DRUGS (1)
  1. AVASTIN [Suspect]
     Active Substance: BEVACIZUMAB
     Indication: DIABETIC RETINOPATHY
     Dosage: ?          OTHER FREQUENCY:EVERY 4?6 WEEKS;?
     Route: 047
     Dates: start: 20190205, end: 20200505

REACTIONS (2)
  - Product use in unapproved indication [None]
  - Headache [None]

NARRATIVE: CASE EVENT DATE: 20200302
